FAERS Safety Report 17524668 (Version 2)
Quarter: 2020Q1

REPORT INFORMATION
  Report Type: Spontaneous
  Country: IT (occurrence: IT)
  Receive Date: 20200310
  Receipt Date: 20200316
  Transmission Date: 20200409
  Serious: Yes (Hospitalization, Other)
  Sender: FDA-Public Use
  Company Number: IT-MYLANLABS-2020M1025354

PATIENT
  Age: 6 Month
  Sex: Female

DRUGS (8)
  1. FLUDARABINE [Suspect]
     Active Substance: FLUDARABINE PHOSPHATE
     Indication: ALLOGENIC STEM CELL TRANSPLANTATION
     Dosage: 3 DOSAGES 50 MG/M2 DAILY
     Route: 065
  2. THIOTEPA. [Suspect]
     Active Substance: THIOTEPA
     Dosage: 5 MILLIGRAM/KILOGRAM, BID,  MG/KG, BID (2/DAY)
     Route: 065
  3. PREDNISONE. [Suspect]
     Active Substance: PREDNISONE
     Indication: PROPHYLAXIS AGAINST GRAFT VERSUS HOST DISEASE
     Dosage: 1 DOSAGE .4 MG/KG DAILY
     Route: 065
  4. CYCLOPHOSPHAMIDE. [Suspect]
     Active Substance: CYCLOPHOSPHAMIDE
     Indication: PROPHYLAXIS AGAINST GRAFT VERSUS HOST DISEASE
     Dosage: 2 DOSAGES 50 MG/KG DAILY
     Route: 065
  5. CYCLOPHOSPHAMIDE. [Suspect]
     Active Substance: CYCLOPHOSPHAMIDE
     Dosage: 100 MILLIGRAM/KILOGRAM, BID, 50 MG/KG, BID (2/DAY)
     Route: 065
  6. BUSULFAN. [Suspect]
     Active Substance: BUSULFAN
     Indication: ALLOGENIC STEM CELL TRANSPLANTATION
     Dosage: 3 DOSAGES 3.2 MG/KG DAILY
  7. CICLOSPORIN [Suspect]
     Active Substance: CYCLOSPORINE
     Indication: PROPHYLAXIS AGAINST GRAFT VERSUS HOST DISEASE
     Dosage: UNK
     Route: 065
  8. THIOTEPA. [Suspect]
     Active Substance: THIOTEPA
     Indication: ALLOGENIC STEM CELL TRANSPLANTATION
     Dosage: 2 DOSAGES 5 MG/KG DAILY
     Route: 065

REACTIONS (4)
  - Chronic graft versus host disease [Recovered/Resolved]
  - Polymyositis [Recovered/Resolved]
  - Pseudomonal sepsis [Unknown]
  - Pneumonia [Unknown]
